FAERS Safety Report 13555240 (Version 1)
Quarter: 2017Q2

REPORT INFORMATION
  Report Type: Spontaneous
  Country: FR (occurrence: FR)
  Receive Date: 20170517
  Receipt Date: 20170517
  Transmission Date: 20170830
  Serious: Yes (Hospitalization, Other)
  Sender: FDA-Public Use
  Company Number: FR-PFIZER INC-2017206936

PATIENT
  Age: 80 Year
  Sex: Female

DRUGS (7)
  1. CO RENITEC [Suspect]
     Active Substance: ENALAPRIL MALEATE\HYDROCHLOROTHIAZIDE
     Indication: HYPERTENSION
     Dosage: 1 DF, 1X/DAY
     Route: 048
     Dates: end: 20170213
  2. COUMADINE [Suspect]
     Active Substance: WARFARIN SODIUM
     Indication: PULMONARY EMBOLISM
     Dosage: 2 MG, 1X/DAY
     Route: 048
     Dates: end: 201704
  3. ECONAZOLE [Suspect]
     Active Substance: ECONAZOLE
     Dosage: 1 DF, AS NEEDED
     Route: 061
  4. TAHOR [Suspect]
     Active Substance: ATORVASTATIN CALCIUM
     Indication: DYSLIPIDAEMIA
     Dosage: 10 MG, 1X/DAY
     Route: 048
     Dates: end: 20170213
  5. DELICAL [Concomitant]
     Active Substance: DIETARY SUPPLEMENT
     Indication: NUTRITIONAL SUPPLEMENTATION
  6. UVEDOSE [Suspect]
     Active Substance: CHOLECALCIFEROL
     Indication: VITAMIN SUPPLEMENTATION
     Dosage: 1 DF, EVERY 3 MONTHS
     Route: 048
  7. DICLOFENAC [Suspect]
     Active Substance: DICLOFENAC
     Dosage: 1 DF, AS NEEDED
     Route: 061

REACTIONS (8)
  - Skin necrosis [Recovering/Resolving]
  - Rash maculo-papular [Unknown]
  - General physical health deterioration [Unknown]
  - Mucosal ulceration [Recovering/Resolving]
  - Diabetes mellitus [Unknown]
  - Skin ulcer [Recovering/Resolving]
  - Erythema [Recovered/Resolved]
  - Behcet^s syndrome [Unknown]

NARRATIVE: CASE EVENT DATE: 20170213
